FAERS Safety Report 5161479-3 (Version None)
Quarter: 2006Q4

REPORT INFORMATION
  Report Type: 
  Country: None (occurrence: None)
  Receive Date: 20061130
  Receipt Date: 20060818
  Transmission Date: 20070319
  Serious: No
  Sender: FDA-Public Use
  Company Number: US-GLAXOSMITHKLINE-A0617274A

PATIENT
  Age: 54 Year
  Sex: Female

DRUGS (5)
  1. WELLBUTRIN XL [Suspect]
     Indication: DEPRESSION
     Dosage: 150MG PER DAY
     Route: 048
     Dates: start: 20060808
  2. FOSAMAX [Concomitant]
  3. LESCOL [Concomitant]
  4. ZETIA [Concomitant]
  5. SYNTHROID [Concomitant]

REACTIONS (3)
  - FATIGUE [None]
  - SENSATION OF HEAVINESS [None]
  - SOMNOLENCE [None]
